FAERS Safety Report 5924711-1 (Version None)
Quarter: 2008Q4

REPORT INFORMATION
  Report Type: 
  Country: None (occurrence: None)
  Receive Date: 20081016
  Receipt Date: 20081008
  Transmission Date: 20090506
  Serious: Yes (Other)
  Sender: FDA-Public Use
  Company Number: JPI-P-002207

PATIENT
  Age: 27 Year
  Sex: Female

DRUGS (4)
  1. XYREM [Suspect]
     Indication: CATAPLEXY
     Dosage: 4 GM (2 GM, 2 IN 1 D) , ORAL
     Route: 048
     Dates: start: 20070401
  2. TRAMADOL HCL [Concomitant]
  3. AMPHETAMINE MIXED SALTS(AMFETAMINE SULFATE) [Concomitant]
  4. MODAFINIL [Concomitant]

REACTIONS (7)
  - DRUG EXPOSURE DURING PREGNANCY [None]
  - DRUG INEFFECTIVE [None]
  - FATIGUE [None]
  - POOR QUALITY SLEEP [None]
  - SOMNOLENCE [None]
  - WEIGHT DECREASED [None]
  - WEIGHT GAIN POOR [None]
